FAERS Safety Report 6501268-8 (Version None)
Quarter: 2009Q4

REPORT INFORMATION
  Report Type: 
  Country: None (occurrence: None)
  Receive Date: 20091216
  Receipt Date: 20091207
  Transmission Date: 20100525
  Serious: Yes (Hospitalization)
  Sender: FDA-Public Use
  Company Number: US-ASTRAZENECA-2009SE30493

PATIENT
  Age: 68 Year
  Sex: Female
  Weight: 82.6 kg

DRUGS (2)
  1. CRESTOR [Suspect]
     Indication: BLOOD CHOLESTEROL INCREASED
     Route: 048
     Dates: start: 19930101, end: 20090601
  2. CRESTOR [Suspect]
     Route: 048
     Dates: start: 20090601

REACTIONS (4)
  - FALL [None]
  - HYPERCHOLESTEROLAEMIA [None]
  - PNEUMONIA [None]
  - WEIGHT DECREASED [None]
